FAERS Safety Report 18883055 (Version 1)
Quarter: 2021Q1

REPORT INFORMATION
  Report Type: Spontaneous
  Country: US (occurrence: US)
  Receive Date: 20210211
  Receipt Date: 20210211
  Transmission Date: 20210420
  Serious: Yes (Other)
  Sender: FDA-Public Use
  Company Number: US-TEVA-2021-US-1877206

PATIENT
  Age: 68 Year
  Sex: Female

DRUGS (27)
  1. DILTIAZEM HYDROCHLORIDE ER [Interacting]
     Active Substance: DILTIAZEM HYDROCHLORIDE
     Indication: TACHYCARDIA
     Dosage: 240 MILLIGRAM DAILY; EXTENDED RELEASE
     Route: 048
     Dates: start: 2019
  2. TACROLIMUS. [Interacting]
     Active Substance: TACROLIMUS
     Indication: IMMUNOSUPPRESSANT DRUG THERAPY
     Dosage: IN THE MORNING; GOAL THOROUGH LEVELS 8?10NG/ML IN THE FIRST 3MONTHS AFTER TRANSPLANT AND THEN 6?8...
     Route: 048
     Dates: start: 201811
  3. AZITHROMYCIN ANHYDROUS. [Concomitant]
     Active Substance: AZITHROMYCIN ANHYDROUS
     Indication: INFECTION PROPHYLAXIS
     Dosage: 3 TIMES WEEKLY
     Route: 048
  4. FLUTICASONE. [Concomitant]
     Active Substance: FLUTICASONE
     Indication: RHINITIS ALLERGIC
     Dosage: 2 SPRAYS DAILY
     Route: 055
  5. IPRATROPIUM BROMIDE. [Concomitant]
     Active Substance: IPRATROPIUM BROMIDE
     Indication: RHINITIS
     Dosage: 2 SPRAYS INTO EACH NOSTRIL BID PRN
     Route: 055
  6. ACETAMINOPHEN. [Concomitant]
     Active Substance: ACETAMINOPHEN
     Indication: PAIN
     Dosage: 2 TABS PO Q6H PRN
     Route: 048
  7. DILTIAZEM HYDROCHLORIDE ER [Suspect]
     Active Substance: DILTIAZEM HYDROCHLORIDE
     Indication: HYPERTENSION
     Dosage: 300 MILLIGRAM DAILY; EXTENDED RELEASE
     Route: 048
     Dates: start: 2019
  8. MYCOPHENOLATE MOFETIL. [Concomitant]
     Active Substance: MYCOPHENOLATE MOFETIL
     Indication: IMMUNOSUPPRESSANT DRUG THERAPY
     Dosage: 500 MILLIGRAM DAILY;
     Route: 048
     Dates: start: 201811
  9. LANSOPRAZOLE. [Concomitant]
     Active Substance: LANSOPRAZOLE
     Indication: GASTROOESOPHAGEAL REFLUX DISEASE
     Dosage: 1 TAB PO QAM BEFORE BREAKFAST
     Route: 048
  10. CALCIUM ADULT GUMMIES [Concomitant]
     Indication: SUPPLEMENTATION THERAPY
     Dosage: 2 GUMMIES PO DAILY
     Route: 048
  11. TACROLIMUS. [Interacting]
     Active Substance: TACROLIMUS
     Dosage: 1 MILLIGRAM DAILY; QAM
     Route: 048
  12. ALENDRONATE SODIUM. [Concomitant]
     Active Substance: ALENDRONATE SODIUM
     Indication: OSTEOPOROSIS
     Route: 048
  13. GUAIFENESIN ER [Concomitant]
     Active Substance: GUAIFENESIN
     Indication: COUGH
     Dosage: 1200 MILLIGRAM DAILY; PRN; EXTENDED RELEASE TABLET
     Route: 048
  14. SODIUM?POTASSIUM PHOSPHATES [Concomitant]
     Indication: HYPOPHOSPHATAEMIA
     Dosage: 280?160?250 MG; 1 PACKET PO QID (WITH MEALS AND AT BEDTIME)
     Route: 048
  15. CHOLECALCIFEROL [Concomitant]
     Active Substance: CHOLECALCIFEROL
     Indication: SUPPLEMENTATION THERAPY
     Dosage: 1 TAB PO DAILY
     Route: 048
  16. CASPOFUNGIN [Concomitant]
     Active Substance: CASPOFUNGIN
     Indication: CANDIDA OSTEOMYELITIS
     Route: 042
     Dates: start: 201905
  17. VALACYCLOVIR [Concomitant]
     Active Substance: VALACYCLOVIR HYDROCHLORIDE
     Indication: HERPES SIMPLEX
     Route: 048
  18. DILTIAZEM. [Interacting]
     Active Substance: DILTIAZEM
     Indication: TACHYCARDIA
  19. BUDESONIDE/FORMOTEROL [Concomitant]
     Active Substance: BUDESONIDE\FORMOTEROL
     Indication: ASTHMA
     Route: 055
  20. DILTIAZEM. [Interacting]
     Active Substance: DILTIAZEM
     Indication: HYPERTENSION
     Dosage: 120 MILLIGRAM DAILY; SHORT?ACTING
     Route: 048
     Dates: start: 201901
  21. PREDNISONE. [Concomitant]
     Active Substance: PREDNISONE
     Indication: IMMUNOSUPPRESSANT DRUG THERAPY
     Dosage: 10 MILLIGRAM DAILY;
     Route: 048
     Dates: start: 201811
  22. KETOCONAZOLE. [Concomitant]
     Active Substance: KETOCONAZOLE
     Indication: FUNGAL INFECTION
     Dosage: APPLY UNDER BREASTS TO INFECTED SITE QOD.
     Route: 061
  23. LIDOCAINE. [Concomitant]
     Active Substance: LIDOCAINE
     Indication: PAIN
     Dosage: 1 PATCH ON SKIN DAILY; DISCARD AFTER 12 HOURS
     Route: 061
  24. FLUCONAZOLE. [Interacting]
     Active Substance: FLUCONAZOLE
     Indication: CANDIDA OSTEOMYELITIS
     Route: 048
     Dates: start: 2019
  25. FAMOTIDINE. [Concomitant]
     Active Substance: FAMOTIDINE
     Indication: GASTROOESOPHAGEAL REFLUX DISEASE
     Dosage: 40 MILLIGRAM DAILY;
     Route: 048
  26. FENTANYL. [Concomitant]
     Active Substance: FENTANYL
     Indication: PAIN
     Dosage: 1 PATCH ON SKIN EVERY 72 HOURS
     Route: 061
  27. SULFAMETHOXAZOLE?TRIMETHOPRIM [Concomitant]
     Active Substance: SULFAMETHOXAZOLE\TRIMETHOPRIM
     Indication: INFECTION PROPHYLAXIS
     Dosage: 800?160 MG 1 TAB 3 TIMES WEEKLY
     Route: 048

REACTIONS (5)
  - Bradykinesia [Recovering/Resolving]
  - Drug interaction [Unknown]
  - Hypomagnesaemia [Unknown]
  - Paradoxical drug reaction [Unknown]
  - Tachycardia [Unknown]

NARRATIVE: CASE EVENT DATE: 2019
